FAERS Safety Report 8557797-9 (Version None)
Quarter: 2012Q3

REPORT INFORMATION
  Report Type: 
  Country: None (occurrence: None)
  Receive Date: 20120801
  Receipt Date: 20120723
  Transmission Date: 20120928
  Serious: No
  Sender: FDA-Public Use
  Company Number: RS-ASTRAZENECA-2012SE51359

PATIENT
  Age: 71 Year
  Sex: Female
  Weight: 130 kg

DRUGS (6)
  1. AMINOPHYLLIN [Concomitant]
     Route: 048
  2. METFORMIN HYDROCHLORIDE [Concomitant]
     Route: 048
  3. FENOTEROL BROMIDE + IPRATROPIUM BROMIDE [Concomitant]
     Route: 007
  4. PULMICORT [Suspect]
     Route: 055
     Dates: start: 20120711, end: 20120712
  5. METHYLDOPA [Concomitant]
     Route: 048
  6. TIOTROPIUM BROMIDE [Concomitant]
     Route: 007
     Dates: start: 20120711

REACTIONS (4)
  - CONTUSION [None]
  - DYSPHONIA [None]
  - OEDEMA PERIPHERAL [None]
  - DYSURIA [None]
